FAERS Safety Report 23100415 (Version 1)
Quarter: 2023Q4

REPORT INFORMATION
  Report Type: Spontaneous
  Country: US (occurrence: None)
  Receive Date: 20231020
  Receipt Date: 20231020
  Transmission Date: 20240110
  Serious: Yes (Hospitalization)
  Sender: FDA-Public Use
  Company Number: None

PATIENT
  Age: 65 Year
  Sex: Male

DRUGS (2)
  1. METFORMIN HYDROCHLORIDE EXTENDED-RELEASE 500MG [Suspect]
     Active Substance: METFORMIN HYDROCHLORIDE
     Dosage: OTHER FREQUENCY : PM;?
     Route: 048
     Dates: start: 20220908, end: 20221201
  2. EMPAGLIFLOZIN [Suspect]
     Active Substance: EMPAGLIFLOZIN
     Dosage: OTHER FREQUENCY : AM;?
     Route: 048
     Dates: start: 20220908, end: 20221001

REACTIONS (1)
  - Diabetic ketoacidosis [None]

NARRATIVE: CASE EVENT DATE: 20221010
